FAERS Safety Report 9303567 (Version 1)
Quarter: 2013Q2

REPORT INFORMATION
  Report Type: Report from Study
  Country: JP (occurrence: JP)
  Receive Date: 20130522
  Receipt Date: 20130522
  Transmission Date: 20140414
  Serious: Yes (Hospitalization)
  Sender: FDA-Public Use
  Company Number: JP-009507513-1305JPN012591

PATIENT
  Age: 62 Year
  Sex: Female

DRUGS (23)
  1. REBETOL [Suspect]
     Indication: CHRONIC HEPATITIS C
     Dosage: 600 MG, UNK
     Route: 048
     Dates: start: 20130201, end: 20130206
  2. REBETOL [Suspect]
     Dosage: 400 MG, UNK
     Route: 048
     Dates: start: 20130207, end: 20130214
  3. REBETOL [Suspect]
     Dosage: 200 MG, UNK
     Route: 048
     Dates: start: 20130215, end: 20130220
  4. REBETOL [Suspect]
     Dosage: UNK
     Route: 048
  5. PEGINTRON [Suspect]
     Indication: CHRONIC HEPATITIS C
     Dosage: 80 MICROGRAM, QW
     Route: 058
     Dates: start: 20130201
  6. PEGINTRON [Suspect]
     Dosage: 80 MICROGRAM, QW
     Route: 058
     Dates: start: 20130207
  7. PEGINTRON [Suspect]
     Dosage: 80 MICROGRAM, QW
     Route: 058
     Dates: start: 20130215
  8. TELAPREVIR [Suspect]
     Indication: CHRONIC HEPATITIS C
     Dosage: 1.5 G, UNK
     Route: 048
     Dates: start: 20130201
  9. TELAPREVIR [Suspect]
     Dosage: 2.25 G, UNK
     Route: 048
     Dates: start: 20130202, end: 20130221
  10. TELAPREVIR [Suspect]
     Dosage: UNK
     Route: 048
  11. MAGNESIUM OXIDE [Concomitant]
     Dosage: UNK
     Dates: start: 20121206
  12. OLMESARTAN MEDOXOMIL [Concomitant]
     Dosage: UNK
     Dates: start: 20121228
  13. ALLOPURINOL [Concomitant]
     Dosage: UNK
     Dates: start: 20130201
  14. VEEN F [Concomitant]
     Dosage: UNK
     Dates: start: 20130204
  15. SOLDEM 3A [Concomitant]
     Dosage: UNK
     Dates: start: 20130205
  16. LOPERAMIDE HYDROCHLORIDE [Concomitant]
     Dosage: UNK
     Dates: start: 20130205, end: 20130206
  17. ACETAMINOPHEN [Concomitant]
     Dosage: UNK
     Dates: start: 20130207
  18. METOCLOPRAMIDE HYDROCHLORIDE [Concomitant]
     Dosage: UNK
     Dates: start: 20130208
  19. BETAMETHASONE [Concomitant]
     Dosage: UNK
     Dates: start: 20130209
  20. CAMPHOR (+) MENTHOL (+) METHYL SALICYLATE [Concomitant]
     Dosage: UNK
     Dates: start: 20130214
  21. LIRAGLUTIDE [Concomitant]
     Dosage: UNK
     Dates: start: 20121019
  22. SENNA [Concomitant]
     Dosage: UNK
     Dates: start: 20121021
  23. BIFIDOBACTERIUM BIFIDUM [Concomitant]
     Dosage: UNK
     Dates: start: 20121206

REACTIONS (1)
  - Decreased appetite [Recovered/Resolved]
